FAERS Safety Report 8304103-0 (Version None)
Quarter: 2012Q2

REPORT INFORMATION
  Report Type: 
  Country: None (occurrence: None)
  Receive Date: 20120423
  Receipt Date: 20120415
  Transmission Date: 20120825
  Serious: No
  Sender: FDA-Public Use
  Company Number: US-BAYER-2012-038640

PATIENT
  Sex: Female

DRUGS (3)
  1. XANAX [Concomitant]
  2. ALEVE (CAPLET) [Suspect]
  3. ACETAMINOPHEN [Interacting]

REACTIONS (1)
  - FEELING ABNORMAL [None]
